FAERS Safety Report 17532888 (Version 1)
Quarter: 2020Q1

REPORT INFORMATION
  Report Type: Spontaneous
  Country: US (occurrence: US)
  Receive Date: 20200312
  Receipt Date: 20200312
  Transmission Date: 20200409
  Serious: Yes (Hospitalization)
  Sender: FDA-Public Use
  Company Number: US-BRISTOL-MYERS SQUIBB COMPANY-BMS-2020-020572

PATIENT
  Age: 84 Year
  Sex: Female

DRUGS (1)
  1. ELIQUIS [Suspect]
     Active Substance: APIXABAN
     Indication: AORTIC VALVE DISEASE
     Dosage: 2.5 MILLIGRAM, BID
     Route: 048
     Dates: start: 201907

REACTIONS (2)
  - Blood disorder [Unknown]
  - Intentional product use issue [Unknown]
